FAERS Safety Report 24294046 (Version 1)
Quarter: 2024Q3

REPORT INFORMATION
  Report Type: Spontaneous
  Country: US (occurrence: None)
  Receive Date: 20240906
  Receipt Date: 20240906
  Transmission Date: 20241017
  Serious: No
  Sender: DOMPE FARMACEUTICI
  Company Number: US-FARMAPROD-202308-202404-1194

PATIENT
  Age: 55 Year
  Sex: Male

DRUGS (3)
  1. OXERVATE [Suspect]
     Active Substance: CENEGERMIN-BKBJ
     Indication: Neurotrophic keratopathy
     Route: 047
     Dates: start: 20240331
  2. OXERVATE [Suspect]
     Active Substance: CENEGERMIN-BKBJ
  3. PROKERA LENS [Concomitant]
     Dates: end: 20240411

REACTIONS (7)
  - Eye pain [Recovering/Resolving]
  - Periorbital swelling [Recovering/Resolving]
  - Eye irritation [Recovering/Resolving]
  - Ocular hyperaemia [Recovering/Resolving]
  - Lacrimation increased [Recovering/Resolving]
  - Photophobia [Recovering/Resolving]
  - Periorbital irritation [Recovering/Resolving]

NARRATIVE: CASE EVENT DATE: 20240331
